FAERS Safety Report 4583221-7 (Version None)
Quarter: 2005Q1

REPORT INFORMATION
  Report Type: 
  Country: None (occurrence: None)
  Receive Date: 20050125
  Receipt Date: 20040824
  Transmission Date: 20050727
  Serious: No
  Sender: FDA-Public Use
  Company Number: USA030844986

PATIENT
  Age: 76 Year
  Sex: Female

DRUGS (2)
  1. FORTEO [Suspect]
     Indication: OSTEOPOROSIS
     Dates: start: 20030801
  2. HUMIRA [Concomitant]

REACTIONS (3)
  - MUSCLE SPASMS [None]
  - ORAL PAIN [None]
  - TOOTH INJURY [None]
